FAERS Safety Report 25763425 (Version 1)
Quarter: 2025Q3

REPORT INFORMATION
  Report Type: Spontaneous
  Country: EU (occurrence: EU)
  Receive Date: 20250905
  Receipt Date: 20250905
  Transmission Date: 20251020
  Serious: Yes (Life-Threatening)
  Sender: TEVA
  Company Number: None

PATIENT
  Age: 63 Year
  Sex: Female
  Weight: 67 kg

DRUGS (5)
  1. PEMETREXED [Suspect]
     Active Substance: PEMETREXED
     Indication: Bronchial carcinoma
     Route: 042
     Dates: start: 202411, end: 202508
  2. CARBOPLATIN [Suspect]
     Active Substance: CARBOPLATIN
     Indication: Bronchial carcinoma
     Route: 042
     Dates: start: 202502
  3. RYBREVANT [Suspect]
     Active Substance: AMIVANTAMAB-VMJW
     Indication: Bronchial carcinoma
     Route: 042
     Dates: start: 202411
  4. LYMECYCLINE [Suspect]
     Active Substance: LYMECYCLINE
     Indication: Product used for unknown indication
     Route: 048
     Dates: start: 202502
  5. ELIQUIS [Suspect]
     Active Substance: APIXABAN
     Indication: Superficial vein thrombosis
     Route: 048
     Dates: start: 202502, end: 202503

REACTIONS (2)
  - Interstitial lung disease [Not Recovered/Not Resolved]
  - Pulmonary embolism [Not Recovered/Not Resolved]

NARRATIVE: CASE EVENT DATE: 20250731
